FAERS Safety Report 24966204 (Version 1)
Quarter: 2025Q1

REPORT INFORMATION
  Report Type: Spontaneous
  Country: US (occurrence: US)
  Receive Date: 20250213
  Receipt Date: 20250213
  Transmission Date: 20250409
  Serious: No
  Sender: BAUSCH AND LOMB
  Company Number: US-BAUSCHBL-2025BNL002054

PATIENT
  Age: 75 Year
  Sex: Female

DRUGS (2)
  1. XIIDRA [Suspect]
     Active Substance: LIFITEGRAST
     Indication: Dry eye
     Route: 047
     Dates: start: 2024
  2. XIIDRA [Suspect]
     Active Substance: LIFITEGRAST
     Route: 047

REACTIONS (5)
  - Vision blurred [Recovered/Resolved]
  - Eye pain [Unknown]
  - Product residue present [Recovered/Resolved]
  - Intentional product use issue [Unknown]
  - Product quality issue [Unknown]

NARRATIVE: CASE EVENT DATE: 20250201
